FAERS Safety Report 24760193 (Version 1)
Quarter: 2024Q4

REPORT INFORMATION
  Report Type: Spontaneous
  Country: US (occurrence: US)
  Receive Date: 20241220
  Receipt Date: 20241220
  Transmission Date: 20250115
  Serious: No
  Sender: PFIZER
  Company Number: US-PFIZER INC-202400069929

PATIENT
  Age: 33 Year
  Sex: Male

DRUGS (1)
  1. CIBINQO [Suspect]
     Active Substance: ABROCITINIB
     Indication: Dermatitis atopic
     Dosage: 100MG 1 PO (ORAL) QD (ONCE A DAY)
     Route: 048
     Dates: start: 202402

REACTIONS (1)
  - Therapeutic product effect incomplete [Unknown]
